FAERS Safety Report 15349463 (Version 1)
Quarter: 2018Q3

REPORT INFORMATION
  Report Type: Report from Study
  Country: US (occurrence: US)
  Receive Date: 20180904
  Receipt Date: 20180904
  Transmission Date: 20181010
  Serious: Yes (Other)
  Sender: FDA-Public Use
  Company Number: PHEH2018US035738

PATIENT

DRUGS (1)
  1. ENTRESTO [Suspect]
     Active Substance: SACUBITRIL\VALSARTAN
     Indication: PRODUCT USED FOR UNKNOWN INDICATION
     Dosage: 2 DF (24 MG SACUBITRIL, 26 MG VALSARTAN), UNK
     Route: 048

REACTIONS (3)
  - Hypotension [Unknown]
  - Dizziness postural [Unknown]
  - Loss of consciousness [Unknown]
